FAERS Safety Report 6377613-3 (Version None)
Quarter: 2009Q3

REPORT INFORMATION
  Report Type: 
  Country: None (occurrence: None)
  Receive Date: 20090923
  Receipt Date: 20090923
  Transmission Date: 20100115
  Serious: Yes (Life-Threatening)
  Sender: FDA-Public Use
  Company Number: None

PATIENT
  Sex: Female
  Weight: 51 kg

DRUGS (6)
  1. HEPARIN [Suspect]
     Indication: DEEP VEIN THROMBOSIS
     Dosage: TITRATED DRIP IV
     Route: 042
     Dates: start: 20081028, end: 20081030
  2. DORZOLAMIDE [Concomitant]
  3. LATROPOST [Concomitant]
  4. TENOLOL [Concomitant]
  5. INSULIN ASPORT SLIDING SCALE [Concomitant]
  6. LANSOPRAZOLE [Concomitant]

REACTIONS (1)
  - PLATELET COUNT DECREASED [None]
